FAERS Safety Report 16248721 (Version 1)
Quarter: 2019Q2

REPORT INFORMATION
  Report Type: Spontaneous
  Country: US (occurrence: US)
  Receive Date: 20190429
  Receipt Date: 20190429
  Transmission Date: 20190711
  Serious: No
  Sender: FDA-Public Use
  Company Number: US-TEVA-2019-US-1039168

PATIENT
  Sex: Female

DRUGS (1)
  1. QVAR REDIHALER [Suspect]
     Active Substance: BECLOMETHASONE DIPROPIONATE
     Indication: ASTHMA

REACTIONS (6)
  - Wrong technique in product usage process [Unknown]
  - Product storage error [Unknown]
  - Device ineffective [Unknown]
  - Device malfunction [Unknown]
  - Product cleaning inadequate [Unknown]
  - Asthma [Unknown]
